FAERS Safety Report 6524267-9 (Version None)
Quarter: 2009Q4

REPORT INFORMATION
  Report Type: 
  Country: None (occurrence: None)
  Receive Date: 20091231
  Receipt Date: 20091228
  Transmission Date: 20100525
  Serious: Yes (Life-Threatening)
  Sender: FDA-Public Use
  Company Number: JP-GENENTECH-296356

PATIENT
  Sex: Male

DRUGS (3)
  1. GRTPA [Suspect]
     Indication: CEREBRAL ARTERY EMBOLISM
     Dosage: 24 MIU, UNK
     Route: 042
     Dates: start: 20091210, end: 20091210
  2. RADICUT [Suspect]
     Indication: CEREBRAL ARTERY EMBOLISM
     Dosage: 60 MG, UNK
     Route: 041
     Dates: start: 20091210, end: 20091212
  3. GASTER [Concomitant]
     Indication: DRUG USE FOR UNKNOWN INDICATION
     Dosage: UNK
     Route: 042
     Dates: start: 20091210, end: 20091212

REACTIONS (1)
  - INTERSTITIAL LUNG DISEASE [None]
